FAERS Safety Report 21334736 (Version 1)
Quarter: 2022Q3

REPORT INFORMATION
  Report Type: Other
  Country: US (occurrence: US)
  Receive Date: 20220914
  Receipt Date: 20220914
  Transmission Date: 20221027
  Serious: Yes (Hospitalization)
  Sender: FDA-Public Use
  Company Number: US-LEADIANT BIOSCIENCES INC-2022STPI000136

PATIENT
  Sex: Male

DRUGS (1)
  1. MATULANE [Suspect]
     Active Substance: PROCARBAZINE HYDROCHLORIDE
     Indication: Non-Hodgkin^s lymphoma
     Dosage: 50 MILLIGRAMS, TAKE 5 CAPSULES (250 MG TOTAL) DAILY ON DAYS 2 TO 8 EVERY CHEMO CYCLE EVERY 28 DAYS
     Route: 048
     Dates: start: 20220319

REACTIONS (3)
  - Confusional state [Unknown]
  - Heart rate irregular [Unknown]
  - Hypotension [Unknown]
